FAERS Safety Report 11763644 (Version 1)
Quarter: 2015Q4

REPORT INFORMATION
  Report Type: Spontaneous
  Country: US (occurrence: US)
  Receive Date: 20151120
  Receipt Date: 20151120
  Transmission Date: 20160304
  Serious: No
  Sender: FDA-Public Use
  Company Number: US-ELI_LILLY_AND_COMPANY-US201304002721

PATIENT
  Sex: Female

DRUGS (2)
  1. FORTEO [Suspect]
     Active Substance: TERIPARATIDE
     Dosage: 20 UG, QD
     Dates: start: 20130408
  2. FORTEO [Suspect]
     Active Substance: TERIPARATIDE
     Indication: OSTEOPOROSIS
     Dosage: 20 UG, QD
     Dates: start: 20130403, end: 20130405

REACTIONS (7)
  - Arthralgia [Unknown]
  - Nausea [Unknown]
  - Pain in extremity [Unknown]
  - Pain [Unknown]
  - Vomiting [Unknown]
  - Back pain [Unknown]
  - Dizziness [Unknown]

NARRATIVE: CASE EVENT DATE: 20130403
